FAERS Safety Report 9279645 (Version 2)
Quarter: 2013Q2

REPORT INFORMATION
  Report Type: Spontaneous
  Country: US (occurrence: US)
  Receive Date: 20130509
  Receipt Date: 20130522
  Transmission Date: 20140414
  Serious: Yes (Hospitalization)
  Sender: FDA-Public Use
  Company Number: US-BIOGENIDEC-2013BI039767

PATIENT
  Age: 77 Year
  Sex: Female

DRUGS (4)
  1. AVONEX [Suspect]
     Indication: MULTIPLE SCLEROSIS
     Route: 030
     Dates: start: 20130417, end: 20130417
  2. AVONEX [Suspect]
     Indication: MULTIPLE SCLEROSIS
     Route: 030
     Dates: start: 20130424, end: 20130424
  3. HYPERTENSION MEDICATION (NOS) [Concomitant]
     Indication: HYPERTENSION
     Dates: start: 2004
  4. PRILOSEC [Concomitant]
     Indication: GASTRIC DISORDER

REACTIONS (11)
  - Disorientation [Not Recovered/Not Resolved]
  - Hypertension [Recovered/Resolved]
  - Balance disorder [Not Recovered/Not Resolved]
  - Diplopia [Recovered/Resolved]
  - Transient ischaemic attack [Unknown]
  - Sensory disturbance [Not Recovered/Not Resolved]
  - Headache [Recovered/Resolved]
  - Paraesthesia [Not Recovered/Not Resolved]
  - Vomiting [Not Recovered/Not Resolved]
  - Central nervous system lesion [Unknown]
  - Gait disturbance [Unknown]
